FAERS Safety Report 8572986-5 (Version None)
Quarter: 2012Q3

REPORT INFORMATION
  Report Type: 
  Country: None (occurrence: None)
  Receive Date: 20120806
  Receipt Date: 20120726
  Transmission Date: 20120928
  Serious: Yes (Other)
  Sender: FDA-Public Use
  Company Number: SI-JNJFOC-20120707818

PATIENT
  Sex: Female

DRUGS (3)
  1. REMICADE [Suspect]
     Indication: IRIDOCYCLITIS
     Route: 042
  2. ENBREL [Suspect]
     Indication: IRIDOCYCLITIS
     Route: 065
  3. HUMIRA [Suspect]
     Indication: IRIDOCYCLITIS
     Route: 065

REACTIONS (2)
  - VIRAL UVEITIS [None]
  - PULMONARY TUBERCULOSIS [None]
